FAERS Safety Report 4887276-1 (Version None)
Quarter: 2005Q4

REPORT INFORMATION
  Report Type: 
  Country: None (occurrence: None)
  Receive Date: 20051221
  Receipt Date: 20050921
  Transmission Date: 20060501
  Serious: No
  Sender: FDA-Public Use
  Company Number: US-YAMANOUCHI-YPA20050490

PATIENT
  Sex: Male

DRUGS (7)
  1. VESICARE [Suspect]
     Dosage: 5 MG PO
     Route: 048
     Dates: start: 20050913, end: 20050919
  2. INSULIN [Concomitant]
  3. FLOMAX [Concomitant]
  4. SINEMET [Concomitant]
  5. PROSCAR [Concomitant]
  6. TOPROL-XL [Concomitant]
  7. ALTACE [Concomitant]

REACTIONS (3)
  - ABNORMAL BEHAVIOUR [None]
  - BLOOD GLUCOSE INCREASED [None]
  - DRUG INEFFECTIVE [None]
